FAERS Safety Report 15663866 (Version 1)
Quarter: 2018Q4

REPORT INFORMATION
  Report Type: Report from Study
  Country: US (occurrence: US)
  Receive Date: 20181128
  Receipt Date: 20181128
  Transmission Date: 20190205
  Serious: Yes (Hospitalization)
  Sender: FDA-Public Use
  Company Number: US-ROCHE-2215768

PATIENT
  Age: 49 Year
  Sex: Male
  Weight: 79.8 kg

DRUGS (9)
  1. TYLENOL [Concomitant]
     Active Substance: ACETAMINOPHEN
     Indication: RASH
  2. ATEZOLIZUMAB. [Suspect]
     Active Substance: ATEZOLIZUMAB
     Indication: MALIGNANT MELANOMA
     Dosage: DATE OF MOST RECENT DOSE OF ATEZOLIZUMAB (840 MG) PRIOR TO AE ONSET 13/NOV/2018, AT 14:27
     Route: 042
     Dates: start: 20180927
  3. TYLENOL [Concomitant]
     Active Substance: ACETAMINOPHEN
     Indication: CANCER PAIN
     Route: 048
     Dates: start: 201801
  4. TYLENOL PM [Concomitant]
     Active Substance: ACETAMINOPHEN\DIPHENHYDRAMINE
     Indication: CANCER PAIN
     Route: 048
     Dates: start: 201801
  5. BAKING SODA MOUTHRINSE [Concomitant]
     Indication: DENTAL DISORDER PROPHYLAXIS
     Route: 065
     Dates: start: 20181107
  6. CLOBETASOL [Concomitant]
     Active Substance: CLOBETASOL
     Indication: RASH
     Route: 061
     Dates: start: 20181015
  7. OXYCODONE [Concomitant]
     Active Substance: OXYCODONE
     Indication: TOOTHACHE
     Route: 048
     Dates: start: 20181016
  8. OXYCODONE [Concomitant]
     Active Substance: OXYCODONE
     Indication: RASH
  9. COBIMETINIB. [Suspect]
     Active Substance: COBIMETINIB
     Indication: MALIGNANT MELANOMA
     Dosage: DATE OF MOST RECENT DOSE OF COBIMETINIB (60 MG) PRIOR TO AE ONSET: 12/NOV/2018
     Route: 048
     Dates: start: 20180927

REACTIONS (1)
  - Cellulitis [Recovered/Resolved]

NARRATIVE: CASE EVENT DATE: 20181113
